FAERS Safety Report 8543650-3 (Version None)
Quarter: 2012Q3

REPORT INFORMATION
  Report Type: 
  Country: None (occurrence: None)
  Receive Date: 20120727
  Receipt Date: 20120719
  Transmission Date: 20120928
  Serious: Yes (Other)
  Sender: FDA-Public Use
  Company Number: PE-PFIZER INC-2012176042

PATIENT
  Sex: Female

DRUGS (2)
  1. PHENYTOIN [Suspect]
     Indication: EPILEPSY
     Dosage: 200 MG, 1X/DAY
  2. PHENYTOIN [Suspect]
     Dosage: 300 MG, 1X/DAY

REACTIONS (3)
  - TOXICITY TO VARIOUS AGENTS [None]
  - DYSKINESIA [None]
  - CHOREA [None]
